FAERS Safety Report 15489330 (Version 2)
Quarter: 2019Q3

REPORT INFORMATION
  Report Type: Spontaneous
  Country: US (occurrence: US)
  Receive Date: 20181011
  Receipt Date: 20190917
  Transmission Date: 20191004
  Serious: Yes (Hospitalization)
  Sender: FDA-Public Use
  Company Number: US-JNJFOC-20181012083

PATIENT
  Age: 62 Year
  Sex: Female

DRUGS (2)
  1. JANUVIA [Suspect]
     Active Substance: SITAGLIPTIN PHOSPHATE
     Route: 065
  2. INVOKANA [Suspect]
     Active Substance: CANAGLIFLOZIN
     Indication: TYPE 2 DIABETES MELLITUS
     Route: 048
     Dates: start: 20160610

REACTIONS (5)
  - Gangrene [Unknown]
  - Urinary tract infection [Unknown]
  - Cellulitis [Unknown]
  - Foot amputation [Unknown]
  - Toe amputation [Unknown]

NARRATIVE: CASE EVENT DATE: 20160831
